FAERS Safety Report 23115700 (Version 2)
Quarter: 2023Q4

REPORT INFORMATION
  Report Type: Spontaneous
  Country: BR (occurrence: BR)
  Receive Date: 20231027
  Receipt Date: 20231106
  Transmission Date: 20240110
  Serious: Yes (Other)
  Sender: FDA-Public Use
  Company Number: BR-SANDOZ-SDZ2023BR017865

PATIENT
  Age: 37 Year
  Sex: Female

DRUGS (3)
  1. ANASTROZOLE [Suspect]
     Active Substance: ANASTROZOLE
     Indication: Product used for unknown indication
     Dosage: UNK
     Route: 065
  2. KISQALI [Suspect]
     Active Substance: RIBOCICLIB
     Dosage: DOSING REGIMEN 2
     Route: 065
  3. KISQALI [Suspect]
     Active Substance: RIBOCICLIB
     Indication: Breast cancer female
     Dosage: DOSING REGIMEN :3
     Route: 065

REACTIONS (17)
  - Immunodeficiency [Recovering/Resolving]
  - Abdominal distension [Unknown]
  - Abdominal pain upper [Unknown]
  - Feeding disorder [Unknown]
  - Malaise [Unknown]
  - Dizziness [Recovering/Resolving]
  - Fall [Unknown]
  - Joint injury [Unknown]
  - Limb injury [Unknown]
  - Anxiety [Recovering/Resolving]
  - Weight decreased [Recovered/Resolved]
  - Weight increased [Unknown]
  - Nausea [Unknown]
  - Liver disorder [Recovering/Resolving]
  - Drug intolerance [Unknown]
  - Abdominal pain [Unknown]
  - Feeling abnormal [Unknown]

NARRATIVE: CASE EVENT DATE: 20230701
